FAERS Safety Report 6697786-2 (Version None)
Quarter: 2010Q2

REPORT INFORMATION
  Report Type: 
  Country: None (occurrence: None)
  Receive Date: 20100423
  Receipt Date: 20100414
  Transmission Date: 20101027
  Serious: Yes (Other)
  Sender: FDA-Public Use
  Company Number: 010224

PATIENT
  Age: 24 Month
  Sex: Male
  Weight: 13 kg

DRUGS (2)
  1. KEPPRA [Suspect]
     Dosage: (250 MG BID)
     Dates: start: 20100301
  2. SULTIAME [Concomitant]

REACTIONS (1)
  - BLOOD ALKALINE PHOSPHATASE INCREASED [None]
